FAERS Safety Report 22219825 (Version 1)
Quarter: 2023Q2

REPORT INFORMATION
  Report Type: Spontaneous
  Country: FR (occurrence: FR)
  Receive Date: 20230417
  Receipt Date: 20230417
  Transmission Date: 20230722
  Serious: Yes (Other)
  Sender: FDA-Public Use
  Company Number: None

PATIENT
  Age: 15 Year
  Sex: Male

DRUGS (5)
  1. MIRTAZAPINE [Suspect]
     Active Substance: MIRTAZAPINE
     Dosage: UNK
  2. ZOLPIDEM TARTRATE [Suspect]
     Active Substance: ZOLPIDEM TARTRATE
     Dosage: UNK
  3. ALPRAZOLAM [Suspect]
     Active Substance: ALPRAZOLAM
     Dosage: UNK
  4. CANNABIDIOL [Suspect]
     Active Substance: CANNABIDIOL
     Dosage: UNK
  5. KETAMINE [Suspect]
     Active Substance: KETAMINE
     Dosage: UNK

REACTIONS (2)
  - Poisoning [Unknown]
  - Withdrawal syndrome [Unknown]
